FAERS Safety Report 11634457 (Version 1)
Quarter: 2015Q4

REPORT INFORMATION
  Report Type: Spontaneous
  Country: US (occurrence: US)
  Receive Date: 20151015
  Receipt Date: 20151015
  Transmission Date: 20160304
  Serious: Yes (Other)
  Sender: FDA-Public Use
  Company Number: US-BAYER-2015-442413

PATIENT
  Age: 89 Year
  Sex: Male
  Weight: 79.37 kg

DRUGS (5)
  1. BAYER LOW DOSE [Suspect]
     Active Substance: ASPIRIN
     Indication: ISCHAEMIC HEART DISEASE PROPHYLAXIS
  2. PSYLLIUM [Concomitant]
     Active Substance: PLANTAGO SEED
  3. LIPOFLAVONOID [Concomitant]
     Active Substance: UNSPECIFIED INGREDIENT
  4. MIRALAX [Suspect]
     Active Substance: POLYETHYLENE GLYCOL 3350
     Indication: CONSTIPATION
     Dosage: 0.5 DF, FOR A WEEK
     Route: 048
  5. STOOL SOFTENER [Concomitant]
     Active Substance: DOCUSATE CALCIUM

REACTIONS (5)
  - Head discomfort [Recovered/Resolved]
  - Haemorrhage [Recovered/Resolved]
  - Joint swelling [Recovered/Resolved]
  - Off label use [None]
  - Drug ineffective [None]
